FAERS Safety Report 19139994 (Version 1)
Quarter: 2021Q2

REPORT INFORMATION
  Report Type: Spontaneous
  Country: US (occurrence: US)
  Receive Date: 20210415
  Receipt Date: 20210415
  Transmission Date: 20210717
  Serious: Yes (Congenital Anomaly, Other)
  Sender: FDA-Public Use
  Company Number: US-TARO-2021TAR00359

PATIENT

DRUGS (2)
  1. CERTOLIZUMAB PEGOL [Suspect]
     Active Substance: CERTOLIZUMAB PEGOL
     Indication: PRODUCT USED FOR UNKNOWN INDICATION
     Dosage: UNK
     Route: 064
  2. BETAMETHASONE VALERATE. [Suspect]
     Active Substance: BETAMETHASONE VALERATE
     Route: 064

REACTIONS (7)
  - Hypertelorism [Unknown]
  - Clinodactyly [Unknown]
  - Foetal exposure during pregnancy [Unknown]
  - Nasal disorder [Unknown]
  - Facial asymmetry [Unknown]
  - Plagiocephaly [Unknown]
  - Hair disorder [Unknown]
